FAERS Safety Report 12972276 (Version 2)
Quarter: 2016Q4

REPORT INFORMATION
  Report Type: Spontaneous
  Country: IT (occurrence: IT)
  Receive Date: 20161124
  Receipt Date: 20161205
  Transmission Date: 20170207
  Serious: Yes (Other)
  Sender: FDA-Public Use
  Company Number: IT-ACCORD-045737

PATIENT
  Age: 66 Year
  Sex: Male

DRUGS (7)
  1. ZALTRAP [Suspect]
     Active Substance: ZIV-AFLIBERCEPT
     Indication: COLON CANCER
     Dosage: 268 MG CYCLICAL
     Route: 042
     Dates: start: 20161003, end: 20161024
  2. ALOXI [Concomitant]
     Active Substance: PALONOSETRON HYDROCHLORIDE
     Dosage: 1 DF
     Route: 042
     Dates: start: 20161003, end: 20161024
  3. DEXAMETHASONE. [Concomitant]
     Active Substance: DEXAMETHASONE
     Dosage: 8 MG
     Route: 042
     Dates: start: 20161003, end: 20161024
  4. FLUOROURACIL ACCORD [Suspect]
     Active Substance: FLUOROURACIL
     Indication: PRODUCT USED FOR UNKNOWN INDICATION
     Route: 042
     Dates: start: 20161003, end: 20161024
  5. CALCIUM LEVOFOLINATE TEVA [Suspect]
     Active Substance: LEVOLEUCOVORIN CALCIUM
     Indication: PRODUCT USED FOR UNKNOWN INDICATION
     Dosage: 360 MG CYCLICAL
     Dates: start: 20161003, end: 20161024
  6. IRINOTECAN FRESENIUS KABI [Suspect]
     Active Substance: IRINOTECAN
     Indication: PRODUCT USED FOR UNKNOWN INDICATION
     Route: 042
     Dates: start: 20161003, end: 20161024
  7. ATROPINE. [Concomitant]
     Active Substance: ATROPINE
     Route: 042
     Dates: start: 20161003, end: 20161024

REACTIONS (4)
  - Diarrhoea [Recovering/Resolving]
  - Vomiting [Recovering/Resolving]
  - Asthenia [Recovering/Resolving]
  - Decreased appetite [Recovering/Resolving]

NARRATIVE: CASE EVENT DATE: 20161031
